FAERS Safety Report 12103639 (Version 2)
Quarter: 2018Q1

REPORT INFORMATION
  Report Type: Spontaneous
  Country: US (occurrence: US)
  Receive Date: 20160222
  Receipt Date: 20180130
  Transmission Date: 20180508
  Serious: No
  Sender: FDA-Public Use
  Company Number: US-ACORDA-ACO_113584_2015

PATIENT
  Age: 60 Year
  Sex: Female

DRUGS (2)
  1. AMPYRA [Suspect]
     Active Substance: DALFAMPRIDINE
     Dosage: UNK
     Route: 065
  2. AMPYRA [Suspect]
     Active Substance: DALFAMPRIDINE
     Indication: MULTIPLE SCLEROSIS
     Dosage: UNK
     Route: 065
     Dates: start: 20140619

REACTIONS (6)
  - Gait inability [Recovered/Resolved]
  - Multiple sclerosis relapse [Recovered/Resolved]
  - Condition aggravated [Unknown]
  - Therapy cessation [Recovered/Resolved]
  - Arthropod bite [Not Recovered/Not Resolved]
  - Gait disturbance [Unknown]

NARRATIVE: CASE EVENT DATE: 201505
